FAERS Safety Report 4491817-6 (Version None)
Quarter: 2004Q4

REPORT INFORMATION
  Report Type: 
  Country: None (occurrence: None)
  Receive Date: 20041101
  Receipt Date: 20041018
  Transmission Date: 20050328
  Serious: Yes (Other)
  Sender: FDA-Public Use
  Company Number: BR-2004-033966

PATIENT
  Age: 35 Year
  Sex: Female

DRUGS (3)
  1. BETAFERON (INTERFERON BETA-1B) INJECTION, 250 UG [Suspect]
     Indication: MULTIPLE SCLEROSIS
     Dosage: 8 MIU, EVERY 2D, SUBCUTANEOUS
     Route: 058
     Dates: start: 20040706, end: 20040901
  2. RISPERIDONE [Concomitant]
  3. MIRELLE [Concomitant]

REACTIONS (2)
  - ABSCESS [None]
  - NECROSIS [None]
